FAERS Safety Report 23264353 (Version 1)
Quarter: 2023Q4

REPORT INFORMATION
  Report Type: Report from Study
  Country: US (occurrence: None)
  Receive Date: 20231205
  Receipt Date: 20231205
  Transmission Date: 20240110
  Serious: Yes (Other)
  Sender: FDA-Public Use
  Company Number: 2023A269906

PATIENT
  Sex: Female

DRUGS (3)
  1. NEXIUM [Suspect]
     Active Substance: ESOMEPRAZOLE MAGNESIUM
     Dosage: UNKNOWN
     Route: 048
  2. NEXIUM [Suspect]
     Active Substance: ESOMEPRAZOLE MAGNESIUM
     Dosage: UNKNOWN
     Route: 048
  3. NEXIUM 24HR [Suspect]
     Active Substance: ESOMEPRAZOLE MAGNESIUM
     Dosage: UNKNOWN UNKNOWN
     Route: 048

REACTIONS (7)
  - Myocardial infarction [Unknown]
  - Gastrooesophageal reflux disease [Unknown]
  - Oesophageal polyp [Unknown]
  - Regurgitation [Unknown]
  - Anorectal disorder [Unknown]
  - Drug ineffective [Unknown]
  - Product dose omission issue [Unknown]
